FAERS Safety Report 7952899-X (Version None)
Quarter: 2011Q4

REPORT INFORMATION
  Report Type: 
  Country: None (occurrence: None)
  Receive Date: 20111201
  Receipt Date: 20111129
  Transmission Date: 20120403
  Serious: No
  Sender: FDA-Public Use
  Company Number: US-COVIDIEN/TYCO HEALTHCARE/MALLINCKRODT-T201102762

PATIENT
  Age: 12 Year
  Sex: Female

DRUGS (1)
  1. EXALGO [Suspect]
     Dosage: UNK

REACTIONS (1)
  - INTENTIONAL DRUG MISUSE [None]
